FAERS Safety Report 9522298 (Version 2)
Quarter: 2014Q4

REPORT INFORMATION
  Report Type: Spontaneous
  Country: US (occurrence: US)
  Receive Date: 20130913
  Receipt Date: 20141008
  Transmission Date: 20150529
  Serious: Yes (Hospitalization)
  Sender: FDA-Public Use
  Company Number: US-BAYER-2013-110521

PATIENT
  Age: 23 Year
  Sex: Female

DRUGS (1)
  1. MIRENA [Suspect]
     Active Substance: LEVONORGESTREL
     Indication: CONTRACEPTION
     Dosage: 20 MCG/24HR, CONT
     Route: 015
     Dates: start: 20081126, end: 20090918

REACTIONS (6)
  - Device dislocation [None]
  - Injury [None]
  - Uterine perforation [None]
  - Dyspareunia [None]
  - Device failure [None]
  - Abdominal pain [None]

NARRATIVE: CASE EVENT DATE: 200909
